FAERS Safety Report 6439936-9 (Version None)
Quarter: 2009Q4

REPORT INFORMATION
  Report Type: 
  Country: None (occurrence: None)
  Receive Date: 20091112
  Receipt Date: 20091112
  Transmission Date: 20100525
  Serious: Yes (Life-Threatening, Hospitalization)
  Sender: FDA-Public Use
  Company Number: None

PATIENT
  Age: 62 Year
  Sex: Male
  Weight: 54.3 kg

DRUGS (1)
  1. LORAZEPAM [Suspect]
     Indication: ANXIETY
     Dosage: 1 MG BID PO
     Route: 048
     Dates: start: 20091107

REACTIONS (3)
  - RESPIRATORY DISTRESS [None]
  - SEDATION [None]
  - UNRESPONSIVE TO STIMULI [None]
